FAERS Safety Report 9120922 (Version 2)
Quarter: 2013Q2

REPORT INFORMATION
  Report Type: Report from Study
  Country: AU (occurrence: AU)
  Receive Date: 20130226
  Receipt Date: 20130415
  Transmission Date: 20140414
  Serious: Yes (Other)
  Sender: FDA-Public Use
  Company Number: AU-JNJFOC-20130211501

PATIENT
  Sex: Male

DRUGS (5)
  1. REMICADE [Suspect]
     Indication: CROHN^S DISEASE
     Route: 042
  2. REMICADE [Suspect]
     Indication: CROHN^S DISEASE
     Route: 042
     Dates: start: 20130123
  3. ZANTAC [Concomitant]
     Route: 042
     Dates: start: 20130123
  4. HYDROCORTISONE [Concomitant]
     Route: 042
     Dates: start: 20130123
  5. PHENERGAN [Concomitant]
     Route: 042
     Dates: start: 20130123

REACTIONS (3)
  - Gastrointestinal haemorrhage [Unknown]
  - Drug ineffective [Unknown]
  - Frequent bowel movements [Unknown]
